FAERS Safety Report 11875523 (Version 4)
Quarter: 2016Q3

REPORT INFORMATION
  Report Type: Spontaneous
  Country: US (occurrence: US)
  Receive Date: 20151229
  Receipt Date: 20160831
  Transmission Date: 20161109
  Serious: Yes (Other)
  Sender: FDA-Public Use
  Company Number: US-PFIZER INC-2015452123

PATIENT
  Age: 79 Year
  Sex: Female
  Weight: 77 kg

DRUGS (5)
  1. LYRICA [Suspect]
     Active Substance: PREGABALIN
     Indication: FIBROMYALGIA
     Dosage: 150 MG, 4X/DAY
     Dates: start: 2008
  2. PREMARIN [Suspect]
     Active Substance: ESTROGENS, CONJUGATED
     Indication: HOT FLUSH
  3. PREMARIN [Suspect]
     Active Substance: ESTROGENS, CONJUGATED
     Indication: VULVOVAGINAL DISORDER
     Dosage: 0.625 MG/G, 2X/WEEK
     Dates: start: 201407
  4. PREMARIN [Suspect]
     Active Substance: ESTROGENS, CONJUGATED
     Indication: VULVOVAGINAL PAIN
  5. PREMARIN [Suspect]
     Active Substance: ESTROGENS, CONJUGATED
     Indication: VULVOVAGINAL DISCOMFORT

REACTIONS (5)
  - Skin disorder [Unknown]
  - Bronchitis [Unknown]
  - Rash [Unknown]
  - Speech disorder [Unknown]
  - Cataract [Unknown]
